FAERS Safety Report 26034809 (Version 1)
Quarter: 2025Q4

REPORT INFORMATION
  Report Type: Spontaneous
  Country: US (occurrence: US)
  Receive Date: 20251112
  Receipt Date: 20251112
  Transmission Date: 20260118
  Serious: No
  Sender: ACCORD
  Company Number: US Coherus biosciences INC - 2024-COH-US000403

PATIENT

DRUGS (1)
  1. UDENYCA [Suspect]
     Active Substance: PEGFILGRASTIM-CBQV
     Indication: Product used for unknown indication
     Dosage: 6 MG, Q3WEEKS?STRENGTH: 6 MG/0.6 ML
     Route: 058
     Dates: start: 20240517

REACTIONS (3)
  - Device malfunction [Unknown]
  - Device malfunction [Unknown]
  - No adverse event [Unknown]

NARRATIVE: CASE EVENT DATE: 20240517
